FAERS Safety Report 10137699 (Version 3)
Quarter: 2014Q2

REPORT INFORMATION
  Report Type: Spontaneous
  Country: US (occurrence: None)
  Receive Date: 20140425
  Receipt Date: 20140626
  Transmission Date: 20141212
  Serious: Yes (Other)
  Sender: FDA-Public Use
  Company Number: ADR-2014-00689

PATIENT
  Age: 56 Year
  Sex: Male

DRUGS (2)
  1. BACLOFEN INTRATHECAL [Suspect]
  2. MORPHINE [Suspect]
     Indication: SPINAL PAIN

REACTIONS (5)
  - Malaise [None]
  - Multiple allergies [None]
  - Device alarm issue [None]
  - Drug withdrawal syndrome [None]
  - Device defective [None]
